FAERS Safety Report 13792845 (Version 1)
Quarter: 2017Q3

REPORT INFORMATION
  Report Type: Spontaneous
  Country: CN (occurrence: CN)
  Receive Date: 20170726
  Receipt Date: 20170726
  Transmission Date: 20171127
  Serious: Yes (Hospitalization)
  Sender: FDA-Public Use
  Company Number: CN-SA-2017SA114633

PATIENT
  Age: 34 Year
  Sex: Male

DRUGS (2)
  1. ISONIAZID. [Concomitant]
     Active Substance: ISONIAZID
     Indication: TUBERCULOSIS
     Route: 065
  2. RIFAMPICIN [Suspect]
     Active Substance: RIFAMPIN
     Indication: TUBERCULOSIS
     Route: 065

REACTIONS (3)
  - Immune thrombocytopenic purpura [Recovering/Resolving]
  - Conjunctival haemorrhage [Unknown]
  - Purpura [Recovering/Resolving]
